FAERS Safety Report 23170753 (Version 1)
Quarter: 2023Q4

REPORT INFORMATION
  Report Type: Spontaneous
  Country: IN (occurrence: IN)
  Receive Date: 20231110
  Receipt Date: 20231110
  Transmission Date: 20240110
  Serious: Yes (Other)
  Sender: FDA-Public Use
  Company Number: IN-MYLANLABS-2023M1118152

PATIENT
  Age: 4 Year
  Sex: Male

DRUGS (6)
  1. PHENYTOIN [Suspect]
     Active Substance: PHENYTOIN
     Indication: Seizure prophylaxis
     Dosage: 5 MILLILITER, BID; SYRUP. GIVEN PHENYTOIN 5ML (125MG) TWICE A DAY INSTEAD OF 2ML (50MG)
     Route: 065
  2. PHENYTOIN [Suspect]
     Active Substance: PHENYTOIN
     Indication: Seizure prophylaxis
     Dosage: 100 MILLIGRAM; PHYSICIAN RETREATED HIM WITH INJECTION PHENYTOIN 100MG
     Route: 065
  3. LEVETIRACETAM [Concomitant]
     Active Substance: LEVETIRACETAM
     Indication: Seizure prophylaxis
     Dosage: 250 MILLIGRAM
     Route: 042
  4. CEFIXIME [Concomitant]
     Active Substance: CEFIXIME
     Indication: Head injury
     Dosage: UNK; SYRUP
     Route: 065
  5. IBUPROFEN [Concomitant]
     Active Substance: IBUPROFEN
     Indication: Head injury
     Dosage: UNK; SYRUP
     Route: 065
  6. ACETAMINOPHEN [Concomitant]
     Active Substance: ACETAMINOPHEN
     Indication: Head injury
     Dosage: 5 MILLILITER, BID; SYRUP
     Route: 065

REACTIONS (3)
  - Incorrect dose administered [Unknown]
  - Toxicity to various agents [Unknown]
  - Overdose [Unknown]
